FAERS Safety Report 16131317 (Version 1)
Quarter: 2019Q1

REPORT INFORMATION
  Report Type: Spontaneous
  Country: FR (occurrence: FR)
  Receive Date: 20190328
  Receipt Date: 20190328
  Transmission Date: 20190418
  Serious: Yes (Hospitalization)
  Sender: FDA-Public Use
  Company Number: FR-009507513-1903FRA008099

PATIENT
  Age: 83 Year
  Sex: Male
  Weight: 84 kg

DRUGS (5)
  1. MIRTAZAPINE. [Suspect]
     Active Substance: MIRTAZAPINE
     Indication: DEPRESSION
     Dosage: 30 MILLIGRAM, QD
     Route: 048
     Dates: start: 20181115, end: 20190121
  2. NEUPRO [Concomitant]
     Active Substance: ROTIGOTINE
     Dosage: 1 DOSAGE FORM, QD
     Route: 062
  3. MODOPAR [Concomitant]
     Active Substance: BENSERAZIDE HYDROCHLORIDE\LEVODOPA
     Dosage: 4 DOSAGE FORM, QD
     Route: 048
  4. MODOPAR [Concomitant]
     Active Substance: BENSERAZIDE HYDROCHLORIDE\LEVODOPA
     Dosage: 1 DOSAGE FORM, QD
     Route: 048
  5. DOMPERIDONE [Concomitant]
     Active Substance: DOMPERIDONE
     Dosage: 30 MILLIGRAM, QD
     Route: 048

REACTIONS (1)
  - Oedema peripheral [Recovering/Resolving]

NARRATIVE: CASE EVENT DATE: 201812
